FAERS Safety Report 7720766-2 (Version None)
Quarter: 2011Q3

REPORT INFORMATION
  Report Type: 
  Country: None (occurrence: None)
  Receive Date: 20110831
  Receipt Date: 20110826
  Transmission Date: 20111222
  Serious: Yes (Death)
  Sender: FDA-Public Use
  Company Number: DE-ASTELLAS-2011EU004844

PATIENT
  Age: 64 Year
  Sex: Male

DRUGS (4)
  1. TACROLIMUS [Suspect]
     Indication: LIVER TRANSPLANT
     Dosage: 18 MG, UID/QD
     Route: 048
     Dates: start: 20110403, end: 20110521
  2. CELLCEPT [Suspect]
     Dosage: 1 G, BID
     Route: 042
     Dates: start: 20110523
  3. PROGRAF [Suspect]
     Indication: LIVER TRANSPLANT
     Dosage: 2 MG, BID
     Route: 042
     Dates: start: 20110522
  4. CELLCEPT [Suspect]
     Indication: LIVER TRANSPLANT
     Dosage: 1 G, BID
     Route: 048
     Dates: start: 20110329, end: 20110521

REACTIONS (1)
  - SEPSIS [None]
